FAERS Safety Report 6165017-8 (Version None)
Quarter: 2009Q2

REPORT INFORMATION
  Report Type: 
  Country: None (occurrence: None)
  Receive Date: 20090421
  Receipt Date: 20090421
  Transmission Date: 20091009
  Serious: No
  Sender: FDA-Public Use
  Company Number: None

PATIENT
  Sex: Female
  Weight: 58.9676 kg

DRUGS (1)
  1. CRESTOR [Suspect]
     Dosage: 10MGS 1 A NITE

REACTIONS (8)
  - ASTHENIA [None]
  - BONE PAIN [None]
  - FEAR [None]
  - FEELING ABNORMAL [None]
  - GAIT DISTURBANCE [None]
  - MENTAL DISORDER [None]
  - MYALGIA [None]
  - SPEECH DISORDER [None]
